FAERS Safety Report 10656136 (Version 2)
Quarter: 2015Q1

REPORT INFORMATION
  Report Type: Spontaneous
  Country: US (occurrence: US)
  Receive Date: 20141216
  Receipt Date: 20150109
  Transmission Date: 20150720
  Serious: Yes (Hospitalization, Other)
  Sender: FDA-Public Use
  Company Number: US-BAYER-2014-184675

PATIENT
  Age: 16 Year
  Sex: Female
  Weight: 58.5 kg

DRUGS (4)
  1. MIRENA [Suspect]
     Active Substance: LEVONORGESTREL
     Indication: CONTRACEPTION
     Dosage: 20 MCG/24HR, CONT
     Route: 015
     Dates: start: 20081230, end: 20101013
  2. ULTRAM [Concomitant]
     Active Substance: TRAMADOL HYDROCHLORIDE
  3. DEPO-PROVERA [Concomitant]
     Active Substance: MEDROXYPROGESTERONE ACETATE
  4. NEXIUM [Concomitant]
     Active Substance: ESOMEPRAZOLE MAGNESIUM

REACTIONS (15)
  - Depression [None]
  - Uterine perforation [None]
  - Gastrointestinal injury [None]
  - Pelvic pain [None]
  - Injury [None]
  - Anxiety [None]
  - Abdominal pain [None]
  - Medical device discomfort [None]
  - Depressed mood [None]
  - Device breakage [None]
  - Complication of device removal [None]
  - Emotional distress [None]
  - Genital haemorrhage [None]
  - Internal injury [None]
  - Fear [None]

NARRATIVE: CASE EVENT DATE: 200901
